FAERS Safety Report 16043723 (Version 2)
Quarter: 2022Q1

REPORT INFORMATION
  Report Type: Spontaneous
  Country: US (occurrence: US)
  Receive Date: 20190306
  Receipt Date: 20220302
  Transmission Date: 20220423
  Serious: Yes (Other)
  Sender: FDA-Public Use
  Company Number: PHEH2019US009744

PATIENT
  Sex: Male

DRUGS (1)
  1. TASIGNA [Suspect]
     Active Substance: NILOTINIB
     Indication: Chronic myeloid leukaemia
     Dosage: 2 DF, BID
     Route: 048
     Dates: start: 201703, end: 201710

REACTIONS (15)
  - Pulmonary oedema [Unknown]
  - Pneumonia streptococcal [Unknown]
  - Interstitial lung disease [Unknown]
  - Coronary artery stenosis [Unknown]
  - Sleep apnoea syndrome [Unknown]
  - Dyspnoea [Unknown]
  - Injury [Unknown]
  - Hyperlipidaemia [Unknown]
  - Hypertension [Unknown]
  - Anaemia [Unknown]
  - Coronary artery disease [Unknown]
  - Arteriosclerosis [Unknown]
  - Pain [Unknown]
  - Anxiety [Unknown]
  - Emotional distress [Unknown]
